FAERS Safety Report 6588842-8 (Version None)
Quarter: 2010Q1

REPORT INFORMATION
  Report Type: 
  Country: None (occurrence: None)
  Receive Date: 20100218
  Receipt Date: 20100209
  Transmission Date: 20100710
  Serious: Yes (Other)
  Sender: FDA-Public Use
  Company Number: A0844779A

PATIENT
  Sex: Female

DRUGS (3)
  1. PROMACTA [Suspect]
     Indication: THROMBOCYTOPENIA
  2. DECADRON [Concomitant]
  3. PLAQUENIL [Concomitant]

REACTIONS (1)
  - LIVER DISORDER [None]
